FAERS Safety Report 9245402 (Version 4)
Quarter: 2013Q3

REPORT INFORMATION
  Report Type: Report from Study
  Country: CA (occurrence: CA)
  Receive Date: 20130422
  Receipt Date: 20130926
  Transmission Date: 20140515
  Serious: Yes (Death)
  Sender: FDA-Public Use
  Company Number: CA-PFIZER INC-2013122289

PATIENT
  Sex: 0

DRUGS (7)
  1. METRONIDAZOLE [Suspect]
     Indication: NEOPLASM
     Dosage: 750 MG/M2, DAILY
     Route: 048
  2. METRONIDAZOLE [Suspect]
     Indication: NEOPLASM
     Dosage: 250 MG/M2, 1X/DAY
     Route: 054
  3. ETOPOSIDE [Suspect]
     Indication: NEOPLASM
     Dosage: 60 MG/M2, 1X/DAY
     Route: 042
  4. TAMOXIFEN [Suspect]
     Indication: NEOPLASM
     Dosage: 100 MG/M2 EACH MORNING
     Route: 048
  5. CYCLOSPORINE [Suspect]
     Indication: NEOPLASM
     Dosage: 150 MG/M2, EVERY 12 HOURS
     Route: 048
  6. DIPYRIDAMOLE [Suspect]
     Indication: NEOPLASM
     Dosage: 100 MG/M2 EVERY 6 HOURS
     Route: 048
  7. KETOCONAZOLE [Suspect]
     Indication: NEOPLASM
     Dosage: 350 MG/M2 EACH MORNING
     Route: 048

REACTIONS (1)
  - Neutropenic sepsis [Fatal]
